FAERS Safety Report 5260469-X (Version None)
Quarter: 2007Q1

REPORT INFORMATION
  Report Type: 
  Country: None (occurrence: None)
  Receive Date: 20070309
  Receipt Date: 20060921
  Transmission Date: 20070707
  Serious: No
  Sender: FDA-Public Use
  Company Number: US-GLAXOSMITHKLINE-A0620825A

PATIENT
  Age: 32 Year
  Sex: Male

DRUGS (2)
  1. TARGET ORIGINAL 2MG [Suspect]
  2. TARGET ORIGINAL 4MG [Suspect]

REACTIONS (3)
  - ORAL DISCOMFORT [None]
  - PARAESTHESIA ORAL [None]
  - THROAT IRRITATION [None]
